FAERS Safety Report 15151294 (Version 1)
Quarter: 2018Q3

REPORT INFORMATION
  Report Type: Spontaneous
  Country: BR (occurrence: BR)
  Receive Date: 20180716
  Receipt Date: 20180716
  Transmission Date: 20181010
  Serious: Yes (Life-Threatening)
  Sender: FDA-Public Use
  Company Number: BR-GEHC-2018CSU002684

PATIENT

DRUGS (2)
  1. OMNISCAN [Suspect]
     Active Substance: GADODIAMIDE
     Indication: ASTHENIA
     Dosage: 14 ML, SINGLE
     Route: 042
     Dates: start: 20180629, end: 20180629
  2. LORATADINA [Concomitant]
     Active Substance: LORATADINE
     Dosage: 10 MG, UNK
     Route: 048

REACTIONS (5)
  - Swelling face [Recovered/Resolved]
  - Oedema [Recovered/Resolved]
  - Discomfort [Recovered/Resolved]
  - Hyperaemia [Recovered/Resolved]
  - Dyspnoea [Recovered/Resolved]

NARRATIVE: CASE EVENT DATE: 20180629
